FAERS Safety Report 9822160 (Version 1)
Quarter: 2014Q1

REPORT INFORMATION
  Report Type: Spontaneous
  Country: FR (occurrence: FR)
  Receive Date: 20140116
  Receipt Date: 20140116
  Transmission Date: 20141002
  Serious: Yes (Hospitalization)
  Sender: FDA-Public Use
  Company Number: FR-ASTRAZENECA-2014SE02220

PATIENT
  Age: 20963 Day
  Sex: Male

DRUGS (12)
  1. BRILIQUE [Suspect]
     Route: 048
     Dates: start: 20131217, end: 20131217
  2. TAHOR [Interacting]
     Route: 048
     Dates: start: 20131217, end: 20131217
  3. TAHOR [Interacting]
     Route: 048
  4. ASPEGIC [Concomitant]
     Route: 048
     Dates: start: 20131217, end: 20131217
  5. LOVENOX [Concomitant]
     Dates: start: 20131217, end: 20131217
  6. AMLOR [Concomitant]
     Dates: end: 20131217
  7. KARDEGIC [Concomitant]
  8. NEBIVOLOL [Concomitant]
     Dates: end: 20131217
  9. COVERSYL [Concomitant]
  10. MIANSERINE [Concomitant]
  11. SERESTA [Concomitant]
  12. VITAMINES B1 B6 B9 [Concomitant]

REACTIONS (2)
  - Drug interaction [Recovering/Resolving]
  - Rhabdomyolysis [Recovering/Resolving]
